FAERS Safety Report 16394398 (Version 2)
Quarter: 2019Q3

REPORT INFORMATION
  Report Type: Spontaneous
  Country: AU (occurrence: AU)
  Receive Date: 20190605
  Receipt Date: 20190809
  Transmission Date: 20191004
  Serious: Yes (Hospitalization, Other)
  Sender: FDA-Public Use
  Company Number: AU-JNJFOC-20190535301

PATIENT
  Age: 29 Year
  Sex: Female
  Weight: 65 kg

DRUGS (2)
  1. ZATAMIL [Concomitant]
     Indication: PSORIASIS
  2. TREMFYA [Suspect]
     Active Substance: GUSELKUMAB
     Indication: PSORIASIS
     Dosage: 100 MG/ML
     Route: 065
     Dates: start: 20190208

REACTIONS (3)
  - Intestinal obstruction [Recovered/Resolved]
  - Gastrointestinal carcinoma [Unknown]
  - Abdominal pain [Unknown]

NARRATIVE: CASE EVENT DATE: 201903
